FAERS Safety Report 15523744 (Version 1)
Quarter: 2018Q4

REPORT INFORMATION
  Report Type: Spontaneous
  Country: FR (occurrence: FR)
  Receive Date: 20181018
  Receipt Date: 20181018
  Transmission Date: 20190205
  Serious: Yes (Death, Other)
  Sender: FDA-Public Use
  Company Number: FR-TEVA-2018-FR-965373

PATIENT
  Age: 64 Year
  Sex: Male
  Weight: 79 kg

DRUGS (11)
  1. VINCRISTINE (SULFATE DE) [Suspect]
     Active Substance: VINCRISTINE SULFATE
     Indication: MANTLE CELL LYMPHOMA
     Dosage: 1.4 MG/M2 DAILY;
     Route: 042
     Dates: start: 20180412, end: 20180525
  2. DOXORUBICINE [Concomitant]
     Active Substance: DOXORUBICIN
     Indication: MANTLE CELL LYMPHOMA
     Route: 042
     Dates: end: 20180709
  3. SOLU-MEDROL [Concomitant]
     Active Substance: METHYLPREDNISOLONE SODIUM SUCCINATE
     Indication: MANTLE CELL LYMPHOMA
     Dosage: 100 MILLIGRAM DAILY;
     Route: 048
     Dates: start: 20180525, end: 20180529
  4. XANAX [Concomitant]
     Active Substance: ALPRAZOLAM
     Dosage: 3 MILLIGRAM DAILY; SCORED
     Route: 048
  5. CYCLOPHOSPHAMIDE. [Concomitant]
     Active Substance: CYCLOPHOSPHAMIDE
     Indication: MANTLE CELL LYMPHOMA
     Route: 042
     Dates: end: 20180709
  6. NOCTAMIDE 2 MG, COMPRIM? S?CABLE [Concomitant]
     Active Substance: LORMETAZEPAM
     Dosage: 4 MILLIGRAM DAILY; SCORED
     Route: 048
  7. FUROSEMIDE. [Concomitant]
     Active Substance: FUROSEMIDE
     Dosage: 60 MILLIGRAM DAILY;
     Route: 042
  8. DACRYOSERUM [Concomitant]
     Active Substance: BORIC ACID\SODIUM BORATE
     Dosage: 1 DOSAGE FORMS DAILY;
     Route: 031
  9. VISMED [Concomitant]
     Active Substance: HYALURONATE SODIUM
     Dosage: 1 DOSAGE FORMS DAILY;
     Route: 031
  10. RITUXIMAB ((MAMMIFERE/HAMSTER/CELLULES CHO)) [Concomitant]
     Active Substance: RITUXIMAB
     Indication: MANTLE CELL LYMPHOMA
     Route: 042
     Dates: end: 20180709
  11. CARTEOL [Concomitant]
     Active Substance: CARTEOLOL
     Dosage: 1 DOSAGE FORMS DAILY;
     Route: 031

REACTIONS (2)
  - Cardiogenic shock [Fatal]
  - Neuropathy peripheral [Fatal]

NARRATIVE: CASE EVENT DATE: 20180525
